FAERS Safety Report 16744800 (Version 8)
Quarter: 2025Q2

REPORT INFORMATION
  Report Type: Report from Study
  Country: US (occurrence: US)
  Receive Date: 20190827
  Receipt Date: 20250528
  Transmission Date: 20250716
  Serious: Yes (Other)
  Sender: ROCHE
  Company Number: US-ROCHE-2385009

PATIENT
  Age: 74 Year
  Sex: Female

DRUGS (10)
  1. ESBRIET [Suspect]
     Active Substance: PIRFENIDONE
     Indication: Idiopathic pulmonary fibrosis
     Dosage: TAKE 1 TABLET BY MOUTH 3 TIMES A DAY?SUBSEQUENT: THERAPY START DATED : 15/MAR/2024
     Route: 048
     Dates: start: 20240105, end: 20240315
  2. ESBRIET [Suspect]
     Active Substance: PIRFENIDONE
     Indication: Idiopathic interstitial pneumonia
  3. CAPECITABINE [Suspect]
     Active Substance: CAPECITABINE
     Indication: Colon cancer
     Route: 048
  4. XARELTO [Concomitant]
     Active Substance: RIVAROXABAN
     Indication: Thrombosis
  5. PROVENTIL HFA [Concomitant]
     Active Substance: ALBUTEROL SULFATE
  6. ASPIRIN [Concomitant]
     Active Substance: ASPIRIN
  7. RHINOCORT AQUA [Concomitant]
     Active Substance: BUDESONIDE
  8. SYNTHROID [Concomitant]
     Active Substance: LEVOTHYROXINE SODIUM
  9. SEROQUEL [Concomitant]
     Active Substance: QUETIAPINE FUMARATE
  10. ZOCOR [Concomitant]
     Active Substance: SIMVASTATIN

REACTIONS (21)
  - Fibromyalgia [Unknown]
  - Rhinorrhoea [Not Recovered/Not Resolved]
  - Off label use [Unknown]
  - Lacrimation increased [Unknown]
  - Abdominal discomfort [Unknown]
  - Cough [Unknown]
  - Colon cancer [Unknown]
  - Pulmonary thrombosis [Recovered/Resolved]
  - Aortic aneurysm [Unknown]
  - Hypothyroidism [Unknown]
  - Aortic arteriosclerosis [Unknown]
  - Dyspepsia [Unknown]
  - Gastrooesophageal reflux disease [Unknown]
  - Hyperlipidaemia [Unknown]
  - Mixed incontinence [Unknown]
  - Stress urinary incontinence [Unknown]
  - Radiculopathy [Unknown]
  - Depression [Unknown]
  - Dyspnoea exertional [Unknown]
  - Syncope [Unknown]
  - Spinal osteoarthritis [Unknown]
